FAERS Safety Report 4713807-8 (Version None)
Quarter: 2005Q3

REPORT INFORMATION
  Report Type: 
  Country: None (occurrence: None)
  Receive Date: 20050713
  Receipt Date: 20050310
  Transmission Date: 20060218
  Serious: Yes (Hospitalization)
  Sender: FDA-Public Use
  Company Number: US-MERCK-0503USA02353

PATIENT
  Age: 64 Year
  Sex: Female
  Weight: 81 kg

DRUGS (12)
  1. VIOXX [Suspect]
     Indication: ARTHRITIS
     Route: 048
     Dates: start: 20000101, end: 20040901
  2. VASOTEC [Concomitant]
     Route: 065
  3. PEPCID [Concomitant]
     Route: 065
  4. PROZAC [Concomitant]
     Route: 065
  5. OXYCONTIN [Concomitant]
     Route: 065
  6. NORVASC [Concomitant]
     Route: 065
  7. ZANAFLEX [Concomitant]
     Route: 065
  8. FLAGYL [Concomitant]
     Route: 065
  9. LEVAQUIN [Concomitant]
     Route: 065
  10. TOPROL-XL [Concomitant]
     Route: 065
  11. [THERAPY UNSPECIFIED] [Concomitant]
     Route: 065
  12. ZANTAC [Concomitant]
     Route: 065

REACTIONS (14)
  - BACK PAIN [None]
  - BRAIN NEOPLASM [None]
  - CEREBRAL ARTERY STENOSIS [None]
  - CEREBROVASCULAR ACCIDENT [None]
  - CHOLECYSTITIS [None]
  - CHOLELITHIASIS [None]
  - FALL [None]
  - HAEMATEMESIS [None]
  - PAIN OF SKIN [None]
  - PNEUMONIA [None]
  - RENAL MASS [None]
  - SENSORY DISTURBANCE [None]
  - SHOULDER PAIN [None]
  - TINNITUS [None]
